FAERS Safety Report 14033902 (Version 1)
Quarter: 2017Q4

REPORT INFORMATION
  Report Type: Spontaneous
  Country: US (occurrence: US)
  Receive Date: 20171003
  Receipt Date: 20171003
  Transmission Date: 20180321
  Serious: Yes (Death, Other)
  Sender: FDA-Public Use
  Company Number: US-APOPHARMA USA, INC.-2017AP019114

PATIENT
  Sex: Female

DRUGS (5)
  1. ZEVALIN [Concomitant]
     Active Substance: IBRITUMOMAB TIUXETAN
     Indication: PLASMA CELL MYELOMA
     Dosage: UNK UNK, SINGLE
     Route: 042
  2. RITUXIMAB. [Concomitant]
     Active Substance: RITUXIMAB
     Indication: PLASMA CELL MYELOMA
     Dosage: 250 MG/M2, QD
     Route: 042
  3. ALKERAN [Suspect]
     Active Substance: MELPHALAN
     Indication: STEM CELL TRANSPLANT
     Dosage: 100 MG/M2, QD
     Route: 042
  4. ZEVALIN [Concomitant]
     Active Substance: IBRITUMOMAB TIUXETAN
     Indication: PLASMA CELL MYELOMA
     Dosage: 5 MCI, SINGLE
     Route: 042
  5. ALKERAN [Suspect]
     Active Substance: MELPHALAN
     Indication: PLASMA CELL MYELOMA

REACTIONS (3)
  - Intestinal ischaemia [Fatal]
  - Escherichia bacteraemia [Fatal]
  - Bone marrow failure [Unknown]
